FAERS Safety Report 5007358-3 (Version None)
Quarter: 2006Q2

REPORT INFORMATION
  Report Type: 
  Country: None (occurrence: None)
  Receive Date: 20060517
  Receipt Date: 20060511
  Transmission Date: 20061013
  Serious: Yes (Other)
  Sender: FDA-Public Use
  Company Number: 007453

PATIENT
  Age: 53 Year
  Sex: Female

DRUGS (4)
  1. MEDROXYPROGESTERONE ACETATE [Suspect]
     Dosage: ORAL
     Route: 048
     Dates: start: 19990101, end: 20010301
  2. PREMARIN [Suspect]
     Dosage: ORAL
     Route: 048
     Dates: start: 19990101, end: 20010301
  3. PROVERA [Suspect]
     Dosage: ORAL
     Route: 048
     Dates: start: 19990101, end: 20010301
  4. PREMPRO [Suspect]
     Dosage: ORAL
     Route: 048
     Dates: start: 20010401, end: 20040201

REACTIONS (1)
  - BREAST CANCER FEMALE [None]
